FAERS Safety Report 8198438-2 (Version None)
Quarter: 2012Q1

REPORT INFORMATION
  Report Type: 
  Country: None (occurrence: None)
  Receive Date: 20120309
  Receipt Date: 20120301
  Transmission Date: 20120608
  Serious: Yes (Other)
  Sender: FDA-Public Use
  Company Number: PHHY2012IT019305

PATIENT
  Sex: Female

DRUGS (3)
  1. FUROSEMIDE [Suspect]
  2. CARVEDILOL [Suspect]
  3. RAMIPRIL [Suspect]

REACTIONS (1)
  - SYNCOPE [None]
